FAERS Safety Report 19565000 (Version 2)
Quarter: 2021Q3

REPORT INFORMATION
  Report Type: Spontaneous
  Country: AR (occurrence: AR)
  Receive Date: 20210715
  Receipt Date: 20210929
  Transmission Date: 20211014
  Serious: Yes (Hospitalization, Other)
  Sender: FDA-Public Use
  Company Number: NVSC2021AR155261

PATIENT
  Age: 63 Year
  Sex: Female

DRUGS (4)
  1. DUOTRAV [Suspect]
     Active Substance: TIMOLOL MALEATE\TRAVOPROST
     Dosage: 10 MG, QD (2 OF 5 MG EVERY DAY IN EACH EYE)
     Route: 065
     Dates: end: 20210623
  2. DUOTRAV [Suspect]
     Active Substance: TIMOLOL MALEATE\TRAVOPROST
     Indication: GLAUCOMA
     Dosage: 10 MG, QD (2 OF 5 MG IN EACH EYE)
     Route: 065
     Dates: end: 20210601
  3. GLAUCOSTAT [Suspect]
     Active Substance: .ALPHA.-TOCOPHEROL ACETATE, DL-\.BETA.-CAROTENE\CALCIUM ASCORBATE\CALCIUM CARBONATE\CALCIUM PANTOTHENATE\CHOLECALCIFEROL\CYANOCOBALAMIN\FERROUS FUMARATE\FOLIC ACID\NIACINAMIDE\PYRIDOXINE HYDROCHLORIDE\RIBOFLAVIN\THIAMINE MONONITRATE\ZINC OXIDE
     Indication: PRODUCT USED FOR UNKNOWN INDICATION
     Dosage: UNK
     Route: 065
  4. SIMBRINZA [Suspect]
     Active Substance: BRIMONIDINE TARTRATE\BRINZOLAMIDE
     Indication: GLAUCOMA
     Dosage: 10 ML, QD (2 OF 5 ML EVERY DAY IN EACH EYE)
     Route: 065

REACTIONS (5)
  - Breast cancer [Unknown]
  - Wound [Unknown]
  - Wound contamination [Unknown]
  - Arterial rupture [Unknown]
  - Intraocular pressure increased [Unknown]

NARRATIVE: CASE EVENT DATE: 201509
